FAERS Safety Report 4958979-5 (Version None)
Quarter: 2006Q1

REPORT INFORMATION
  Report Type: 
  Country: None (occurrence: None)
  Receive Date: 20060331
  Receipt Date: 20060324
  Transmission Date: 20060701
  Serious: Yes (Other)
  Sender: FDA-Public Use
  Company Number: PHEH2006US03992

PATIENT
  Sex: Male

DRUGS (3)
  1. CLOZARIL [Suspect]
     Dosage: 50 OR 100 MG
     Route: 048
  2. NEURONTIN [Suspect]
  3. SEROQUEL [Suspect]

REACTIONS (2)
  - BLADDER HYPERTROPHY [None]
  - URINARY RETENTION [None]
